FAERS Safety Report 9940777 (Version 1)
Quarter: 2014Q1

REPORT INFORMATION
  Report Type: Spontaneous
  Country: US (occurrence: US)
  Receive Date: 20140303
  Receipt Date: 20140303
  Transmission Date: 20141002
  Serious: No
  Sender: FDA-Public Use
  Company Number: US-PFIZER INC-2014059437

PATIENT
  Age: 66 Year
  Sex: Female

DRUGS (15)
  1. CELEBREX [Suspect]
     Dosage: UNK
  2. GABAPENTIN [Suspect]
     Dosage: UNK
  3. DOXYCYCLINE HYCLATE [Suspect]
     Dosage: UNK
  4. SPIRIVA [Suspect]
     Dosage: UNK
  5. ADVAIR DISKUS [Suspect]
     Dosage: UNK
  6. ALEVE [Suspect]
     Dosage: UNK
  7. FLOVENT [Suspect]
     Dosage: UNK
  8. INFLUENZA VIRUS VACCINE [Suspect]
     Dosage: UNK
  9. NITROFURANTOIN MONOHYDRATE [Suspect]
     Dosage: UNK
  10. PRILOSEC [Suspect]
     Dosage: UNK
  11. PROZAC [Suspect]
     Dosage: UNK
  12. PULMICORT FLEXHALER [Suspect]
     Dosage: UNK
  13. SINGULAIR [Suspect]
     Dosage: UNK
  14. TORADOL [Suspect]
     Dosage: UNK
     Route: 048
  15. VIOXX [Suspect]
     Dosage: UNK

REACTIONS (1)
  - Drug hypersensitivity [Unknown]
